FAERS Safety Report 6756226-5 (Version None)
Quarter: 2010Q2

REPORT INFORMATION
  Report Type: 
  Country: None (occurrence: None)
  Receive Date: 20100604
  Receipt Date: 20100524
  Transmission Date: 20101027
  Serious: Yes (Other)
  Sender: FDA-Public Use
  Company Number: US-JNJCH-2010013035

PATIENT
  Age: 77 Year
  Sex: Female
  Weight: 63.5 kg

DRUGS (1)
  1. ROLAIDS TAB [Suspect]
     Indication: DYSPEPSIA
     Dosage: TEXT:1 OR 2 TABLETS ONCE OR TWICE A DAY
     Route: 048

REACTIONS (3)
  - CANDIDIASIS [None]
  - EATING DISORDER [None]
  - LYMPHADENOPATHY [None]
